FAERS Safety Report 17374764 (Version 5)
Quarter: 2020Q1

REPORT INFORMATION
  Report Type: Spontaneous
  Country: US (occurrence: US)
  Receive Date: 20200205
  Receipt Date: 20200327
  Transmission Date: 20200409
  Serious: Yes (Other)
  Sender: FDA-Public Use
  Company Number: US-PFIZER INC-2020050112

PATIENT
  Age: 57 Year
  Sex: Male
  Weight: 68.27 kg

DRUGS (1)
  1. CHANTIX [Suspect]
     Active Substance: VARENICLINE TARTRATE
     Dosage: UNK (DOSE: 0.5 UNIT: UNKNOWN; 180 TABLETS FOR 90 DAYS)

REACTIONS (2)
  - Deafness [Unknown]
  - Speech disorder [Unknown]
